FAERS Safety Report 6698683-9 (Version None)
Quarter: 2010Q2

REPORT INFORMATION
  Report Type: 
  Country: None (occurrence: None)
  Receive Date: 20100427
  Receipt Date: 20090430
  Transmission Date: 20101027
  Serious: No
  Sender: FDA-Public Use
  Company Number: US-ASTRAZENECA-2009UW08472

PATIENT
  Sex: Female

DRUGS (1)
  1. ZOMIG [Suspect]
     Indication: CLUSTER HEADACHE
     Route: 045

REACTIONS (4)
  - CLUSTER HEADACHE [None]
  - DRUG INEFFECTIVE [None]
  - DYSGEUSIA [None]
  - PRODUCT QUALITY ISSUE [None]
